FAERS Safety Report 4869225-5 (Version None)
Quarter: 2005Q4

REPORT INFORMATION
  Report Type: 
  Country: None (occurrence: None)
  Receive Date: 20051230
  Receipt Date: 20051222
  Transmission Date: 20060501
  Serious: Yes (Other)
  Sender: FDA-Public Use
  Company Number: PHEH2005US13824

PATIENT
  Sex: Male

DRUGS (2)
  1. LISINOPRIL [Suspect]
  2. DIOVAN [Suspect]

REACTIONS (1)
  - SWOLLEN TONGUE [None]
